FAERS Safety Report 10036470 (Version 3)
Quarter: 2014Q2

REPORT INFORMATION
  Report Type: Spontaneous
  Country: GB (occurrence: GB)
  Receive Date: 20140326
  Receipt Date: 20140530
  Transmission Date: 20141212
  Serious: Yes (Life-Threatening, Hospitalization)
  Sender: FDA-Public Use
  Company Number: PHHY2014GB034446

PATIENT
  Age: 78 Year
  Sex: Male

DRUGS (13)
  1. CARBOPLATIN [Suspect]
     Dosage: 540 MG, UNK
     Dates: start: 20090512
  2. CARBOPLATIN [Suspect]
     Dosage: 540 MG, UNK
     Dates: start: 20090519
  3. CARBOPLATIN [Suspect]
     Dates: start: 20090212
  4. CARBOPLATIN [Suspect]
     Dates: start: 2009
  5. GEMCITABINE [Suspect]
     Dates: start: 20090212
  6. GEMCITABINE [Suspect]
     Dates: start: 2009
  7. GEMCITABINE [Suspect]
     Dosage: 2394 MG, UNK
     Dates: start: 20090512
  8. GEMCITABINE [Suspect]
     Dosage: 2394 MG, UNK
     Dates: start: 20090519
  9. ACETYLSALICYLIC ACID [Suspect]
     Route: 048
     Dates: start: 20001205, end: 20090525
  10. DALTEPARIN SODIUM [Suspect]
     Indication: LUNG NEOPLASM MALIGNANT
     Dosage: 5000 IU, QD
     Route: 058
     Dates: start: 20090310, end: 20090525
  11. DALTEPARIN SODIUM [Suspect]
     Dates: start: 20090716, end: 20090724
  12. SIMVASTATIN [Concomitant]
     Dosage: 70 MG, UNK
  13. SOTALOL [Concomitant]
     Dosage: 80 MG, UNK
     Dates: start: 20000224

REACTIONS (4)
  - Epistaxis [Recovered/Resolved]
  - Platelet count decreased [Recovered/Resolved]
  - Neutrophil count decreased [Recovered/Resolved]
  - White blood cell count decreased [Recovered/Resolved]
